FAERS Safety Report 16907810 (Version 1)
Quarter: 2019Q4

REPORT INFORMATION
  Report Type: Spontaneous
  Country: US (occurrence: US)
  Receive Date: 20190820
  Receipt Date: 20190820
  Transmission Date: 20200122
  Serious: Yes (Hospitalization)
  Sender: FDA-Public Use
  Company Number: None

PATIENT
  Age: 32 Month
  Sex: Male
  Weight: 11.4 kg

DRUGS (6)
  1. CISPLATIN. [Suspect]
     Active Substance: CISPLATIN
     Dates: end: 20190807
  2. 5-FLUOROURACIL (5-FU) [Suspect]
     Active Substance: FLUOROURACIL
     Dates: end: 20190807
  3. VINCRISTINE SULFATE. [Suspect]
     Active Substance: VINCRISTINE SULFATE
     Dates: end: 20190814
  4. ZINECARD [Suspect]
     Active Substance: DEXRAZOXANE HYDROCHLORIDE
     Dates: end: 20190808
  5. LOVENOX [Concomitant]
     Active Substance: ENOXAPARIN SODIUM
  6. DOXORUBICIN HYDROCHLORIDE. [Suspect]
     Active Substance: DOXORUBICIN HYDROCHLORIDE
     Dates: end: 20190808

REACTIONS (9)
  - Portal vein thrombosis [None]
  - Vena cava thrombosis [None]
  - Toxicity to various agents [None]
  - Tumour haemorrhage [None]
  - Hepatoblastoma [None]
  - Acute kidney injury [None]
  - Nephropathy toxic [None]
  - Haemoglobin decreased [None]
  - Transfusion [None]

NARRATIVE: CASE EVENT DATE: 20190816
